FAERS Safety Report 5155747-9 (Version None)
Quarter: 2006Q4

REPORT INFORMATION
  Report Type: 
  Country: None (occurrence: None)
  Receive Date: 20061113
  Receipt Date: 20061031
  Transmission Date: 20070319
  Serious: Yes (Hospitalization)
  Sender: FDA-Public Use
  Company Number: 2006135325

PATIENT
  Age: 43 Year
  Sex: Male

DRUGS (5)
  1. ETHANOL (ETHANOL) [Suspect]
     Indication: SUICIDAL BEHAVIOUR
     Dosage: ORAL
     Route: 048
  2. TRAMADOL HCL [Suspect]
     Indication: SUICIDAL BEHAVIOUR
     Dosage: ORAL
     Route: 048
  3. BENZODIAZEPINE DERIVATIVES (BENZODIAZEPINE DERIVATIVES) [Suspect]
     Indication: SUICIDAL BEHAVIOUR
     Dosage: ORAL
     Route: 048
  4. OXYCODONE HCL [Suspect]
     Indication: SUICIDAL BEHAVIOUR
     Dosage: ORAL
     Route: 048
  5. OXYCODONE HCL [Suspect]
     Indication: SUICIDAL BEHAVIOUR
     Dosage: ORAL
     Route: 048

REACTIONS (22)
  - AGITATION [None]
  - BLOOD CREATINE PHOSPHOKINASE INCREASED [None]
  - BLOOD PH DECREASED [None]
  - BODY TEMPERATURE INCREASED [None]
  - CLONUS [None]
  - DEPRESSED LEVEL OF CONSCIOUSNESS [None]
  - DRUG INEFFECTIVE [None]
  - DRUG WITHDRAWAL SYNDROME [None]
  - ELECTROCARDIOGRAM QRS COMPLEX SHORTENED [None]
  - ENCEPHALOPATHY [None]
  - HYPERREFLEXIA [None]
  - INCREASED UPPER AIRWAY SECRETION [None]
  - INTENTIONAL DRUG MISUSE [None]
  - PCO2 INCREASED [None]
  - PILOERECTION [None]
  - PNEUMONIA ASPIRATION [None]
  - PO2 INCREASED [None]
  - SPUTUM CULTURE POSITIVE [None]
  - STREPTOCOCCAL INFECTION [None]
  - SUICIDAL BEHAVIOUR [None]
  - TREMOR [None]
  - WRONG TECHNIQUE IN DRUG USAGE PROCESS [None]
